FAERS Safety Report 11661218 (Version 1)
Quarter: 2015Q4

REPORT INFORMATION
  Report Type: Spontaneous
  Country: US (occurrence: US)
  Receive Date: 20151026
  Receipt Date: 20151026
  Transmission Date: 20160304
  Serious: No
  Sender: FDA-Public Use
  Company Number: US-APOTEX-2015AP009733

PATIENT

DRUGS (1)
  1. OLOPATADINE HYDROCHLORIDE NASAL [Suspect]
     Active Substance: OLOPATADINE HYDROCHLORIDE
     Indication: PRODUCT USED FOR UNKNOWN INDICATION
     Dosage: 1 SPRAYS PER NOSTRIL/DAILY
     Route: 045

REACTIONS (4)
  - Intentional underdose [Recovered/Resolved]
  - Chest discomfort [Recovered/Resolved]
  - Chest pain [Recovered/Resolved]
  - Product label issue [Recovered/Resolved]
